FAERS Safety Report 9525200 (Version 1)
Quarter: 2013Q3

REPORT INFORMATION
  Report Type: Report from Study
  Country: CA (occurrence: CA)
  Receive Date: 20130916
  Receipt Date: 20130916
  Transmission Date: 20140515
  Serious: Yes (Other)
  Sender: FDA-Public Use
  Company Number: PHHY2013CA102118

PATIENT
  Sex: Male

DRUGS (1)
  1. GILENYA [Suspect]
     Indication: RELAPSING-REMITTING MULTIPLE SCLEROSIS
     Dosage: 0.5 MG, QD
     Route: 048
     Dates: start: 20130215, end: 20130515

REACTIONS (5)
  - Hepatic pain [Unknown]
  - General physical health deterioration [Unknown]
  - Foreign body sensation in eyes [Unknown]
  - Heart rate increased [Unknown]
  - Paraesthesia [Unknown]
